FAERS Safety Report 9198624 (Version 1)
Quarter: 2013Q1

REPORT INFORMATION
  Report Type: Spontaneous
  Country: FR (occurrence: FR)
  Receive Date: 20130329
  Receipt Date: 20130329
  Transmission Date: 20140127
  Serious: Yes (Other)
  Sender: FDA-Public Use
  Company Number: FR-JNJFOC-20130314028

PATIENT
  Age: 42 Year
  Sex: Female

DRUGS (1)
  1. XEPLION [Suspect]
     Indication: PRODUCT USED FOR UNKNOWN INDICATION
     Route: 030
     Dates: start: 20130225

REACTIONS (4)
  - Hallucination [Unknown]
  - Irritability [Unknown]
  - Anxiety [Unknown]
  - Dysgeusia [Unknown]
